FAERS Safety Report 24178914 (Version 1)
Quarter: 2024Q3

REPORT INFORMATION
  Report Type: Spontaneous
  Country: FR (occurrence: FR)
  Receive Date: 20240806
  Receipt Date: 20240806
  Transmission Date: 20241017
  Serious: Yes (Other)
  Sender: RANBAXY
  Company Number: FR-SUN PHARMACEUTICAL INDUSTRIES LTD-2024RR-460357

PATIENT
  Age: 57 Year
  Sex: Female
  Weight: 58 kg

DRUGS (5)
  1. SERTRALINE [Suspect]
     Active Substance: SERTRALINE HYDROCHLORIDE
     Indication: Wrong patient received product
     Dosage: 50 MILLIGRAM, IN TOTAL
     Route: 048
     Dates: start: 20240326, end: 20240326
  2. TROPATEPINE HYDROCHLORIDE [Suspect]
     Active Substance: TROPATEPINE HYDROCHLORIDE
     Indication: Wrong patient received product
     Dosage: 1 DOSAGE FORM, IN TOTAL
     Route: 048
     Dates: start: 20240326, end: 20240326
  3. LEVOMEPROMAZINE [Suspect]
     Active Substance: LEVOMEPROMAZINE
     Indication: Wrong patient received product
     Dosage: 1 DOSAGE FORM, IN TOTAL
     Route: 048
     Dates: start: 20240326, end: 20240326
  4. AMISULPRIDE [Suspect]
     Active Substance: AMISULPRIDE
     Indication: Wrong patient received product
     Dosage: 1 DOSAGE FORM, IN TOTAL
     Route: 048
     Dates: start: 20240326, end: 20240326
  5. PIPAMPERONE [Suspect]
     Active Substance: PIPAMPERONE
     Indication: Wrong patient received product
     Dosage: 1 DOSAGE FORM, IN TOTAL
     Route: 048
     Dates: start: 20240326, end: 20240326

REACTIONS (4)
  - Somnolence [Recovered/Resolved]
  - Dysarthria [Recovered/Resolved]
  - Tachycardia [Recovered/Resolved]
  - Wrong patient received product [Recovered/Resolved]

NARRATIVE: CASE EVENT DATE: 20240326
